FAERS Safety Report 25175940 (Version 1)
Quarter: 2025Q2

REPORT INFORMATION
  Report Type: Report from Study
  Country: GR (occurrence: GR)
  Receive Date: 20250409
  Receipt Date: 20250409
  Transmission Date: 20250717
  Serious: Yes (Hospitalization)
  Sender: ABBVIE
  Company Number: GR-ABBVIE-6211213

PATIENT
  Age: 73 Year
  Sex: Female
  Weight: 65 kg

DRUGS (2)
  1. CARBIDOPA\LEVODOPA [Suspect]
     Active Substance: CARBIDOPA\LEVODOPA
     Indication: Parkinson^s disease
     Route: 050
     Dates: start: 20240619
  2. CARBIDOPA\LEVODOPA [Suspect]
     Active Substance: CARBIDOPA\LEVODOPA
     Route: 050
     Dates: end: 20250403

REACTIONS (7)
  - Depressed mood [Recovering/Resolving]
  - Drug ineffective [Not Recovered/Not Resolved]
  - Malaise [Recovering/Resolving]
  - Incorrect route of product administration [Recovered/Resolved]
  - On and off phenomenon [Recovering/Resolving]
  - Hyperkinesia [Recovering/Resolving]
  - Device dislocation [Unknown]
